FAERS Safety Report 17368556 (Version 1)
Quarter: 2020Q1

REPORT INFORMATION
  Report Type: Spontaneous
  Country: LT (occurrence: LT)
  Receive Date: 20200204
  Receipt Date: 20200204
  Transmission Date: 20200409
  Serious: Yes (Life-Threatening, Hospitalization)
  Sender: FDA-Public Use
  Company Number: LT-BAUSCH-BL-2020-002968

PATIENT
  Age: 57 Year
  Sex: Male
  Weight: 104 kg

DRUGS (19)
  1. ACETYLSALICYLIC ACID [Suspect]
     Active Substance: ASPIRIN
     Indication: HYPERTENSION
     Route: 048
     Dates: start: 20191217, end: 20191218
  2. MAGNESIUM SULFATE. [Suspect]
     Active Substance: MAGNESIUM SULFATE
     Indication: DETOXIFICATION
     Route: 040
     Dates: start: 20191218, end: 20191218
  3. DIAZEPAM. [Suspect]
     Active Substance: DIAZEPAM
     Indication: ALCOHOL ABUSE
     Route: 030
     Dates: start: 20191217, end: 20191219
  4. NATRII CHLORIDUM [Suspect]
     Active Substance: SODIUM CHLORIDE
     Indication: DETOXIFICATION
     Route: 040
     Dates: start: 20191218, end: 20191218
  5. METOPROLOL. [Suspect]
     Active Substance: METOPROLOL
     Indication: HYPERTENSION
     Route: 048
     Dates: start: 20191218, end: 20191219
  6. TRIHEXYPHENIDYL [Suspect]
     Active Substance: TRIHEXYPHENIDYL
     Indication: PRODUCT USED FOR UNKNOWN INDICATION
     Route: 048
     Dates: start: 20191219, end: 20191219
  7. HALOPERIDOL. [Suspect]
     Active Substance: HALOPERIDOL
     Indication: DELIRIUM
     Route: 030
     Dates: start: 20191217, end: 20191218
  8. SILIMARIN [Suspect]
     Active Substance: HERBALS\SILYBUM MARIANUM WHOLE
     Indication: HEPATITIS ALCOHOLIC
     Route: 048
     Dates: start: 20191218, end: 20191219
  9. RINGERS SOLUTION [Suspect]
     Active Substance: CALCIUM CHLORIDE\POTASSIUM CHLORIDE\SODIUM CHLORIDE
     Indication: DETOXIFICATION
     Route: 040
     Dates: start: 20191218, end: 20191218
  10. DIAZEPAM. [Suspect]
     Active Substance: DIAZEPAM
     Indication: MENTAL DISORDER
  11. HALOPERIDOL. [Suspect]
     Active Substance: HALOPERIDOL
     Indication: ALCOHOL ABUSE
  12. CHLORPROTHIXENE [Suspect]
     Active Substance: CHLORPROTHIXENE
     Indication: MENTAL DISORDER
  13. HALOPERIDOL. [Suspect]
     Active Substance: HALOPERIDOL
     Indication: MENTAL DISORDER
  14. TIAPRIDE [Suspect]
     Active Substance: TIAPRIDE
     Indication: PSYCHOMOTOR HYPERACTIVITY
     Route: 048
     Dates: start: 20191219, end: 20191219
  15. CHLORPROTHIXENE [Suspect]
     Active Substance: CHLORPROTHIXENE
     Indication: ALCOHOL ABUSE
     Route: 048
     Dates: start: 20191217, end: 20191217
  16. CHLORPROTHIXENE [Suspect]
     Active Substance: CHLORPROTHIXENE
     Indication: DELIRIUM
  17. AMLODIPIN [Suspect]
     Active Substance: AMLODIPINE BESYLATE
     Indication: HYPERTENSION
     Route: 048
     Dates: start: 20191218, end: 20191218
  18. DIAZEPAM. [Suspect]
     Active Substance: DIAZEPAM
     Indication: DELIRIUM
  19. ENALAPRIL [Suspect]
     Active Substance: ENALAPRIL
     Indication: HYPERTENSION
     Route: 048
     Dates: start: 20191218, end: 20191219

REACTIONS (2)
  - Respiratory disorder [Recovered/Resolved]
  - Neck pain [Recovered/Resolved]

NARRATIVE: CASE EVENT DATE: 20191219
